FAERS Safety Report 5517843-3 (Version None)
Quarter: 2007Q4

REPORT INFORMATION
  Report Type: 
  Country: None (occurrence: None)
  Receive Date: 20071113
  Receipt Date: 20071106
  Transmission Date: 20080405
  Serious: Yes (Death, Hospitalization)
  Sender: FDA-Public Use
  Company Number: 163-21880-07100945

PATIENT
  Age: 50 Year
  Sex: Male

DRUGS (1)
  1. REVLIMID [Suspect]
     Indication: HODGKIN'S DISEASE
     Dosage: 25 MG, X21 DAYS, THE OFF X7 DAYS, ORAL
     Route: 049
     Dates: start: 20070501, end: 20070601

REACTIONS (6)
  - CARDIOPULMONARY FAILURE [None]
  - DISEASE PROGRESSION [None]
  - FASCIITIS [None]
  - HODGKIN'S DISEASE [None]
  - INFECTION [None]
  - SEPTIC SHOCK [None]
